FAERS Safety Report 16886494 (Version 1)
Quarter: 2019Q4

REPORT INFORMATION
  Report Type: Spontaneous
  Country: IT (occurrence: IT)
  Receive Date: 20191004
  Receipt Date: 20191004
  Transmission Date: 20200122
  Serious: Yes (Hospitalization)
  Sender: FDA-Public Use
  Company Number: IT-MYLANLABS-2019M1091925

PATIENT
  Age: 37 Year
  Sex: Female
  Weight: 49 kg

DRUGS (4)
  1. OMEPRAZOLE. [Concomitant]
     Active Substance: OMEPRAZOLE
     Dosage: UNK
  2. TACHIPIRINA [Concomitant]
     Active Substance: ACETAMINOPHEN
     Dosage: UNK
  3. SOLDESAM [Concomitant]
     Active Substance: DEXAMETHASONE
     Dosage: UNK
  4. PACLITAXEL. [Suspect]
     Active Substance: PACLITAXEL
     Indication: BREAST CANCER
     Dosage: 118.4 MILLIGRAM
     Route: 042
     Dates: start: 20190502

REACTIONS (2)
  - Anaemia [Recovering/Resolving]
  - Hypertransaminasaemia [Recovering/Resolving]

NARRATIVE: CASE EVENT DATE: 20190515
